FAERS Safety Report 11585723 (Version 3)
Quarter: 2015Q4

REPORT INFORMATION
  Report Type: Report from Study
  Country: CR (occurrence: CR)
  Receive Date: 20151001
  Receipt Date: 20151116
  Transmission Date: 20160304
  Serious: Yes (Other)
  Sender: FDA-Public Use
  Company Number: PHHY2015CR117092

PATIENT
  Age: 18 Year
  Sex: Female
  Weight: 63 kg

DRUGS (3)
  1. CONCERTA [Concomitant]
     Active Substance: METHYLPHENIDATE HYDROCHLORIDE
     Indication: DISTURBANCE IN ATTENTION
     Dosage: 54 MG, QD
     Route: 048
     Dates: start: 2011, end: 201501
  2. TASIGNA [Suspect]
     Active Substance: NILOTINIB
     Indication: CHRONIC MYELOID LEUKAEMIA
     Dosage: 200 MG, BID
     Route: 048
     Dates: start: 201409, end: 201502
  3. TASIGNA [Suspect]
     Active Substance: NILOTINIB
     Dosage: 200 MG, BID
     Route: 048
     Dates: start: 201505

REACTIONS (11)
  - Platelet count increased [Unknown]
  - Premature delivery [Unknown]
  - Pruritus [Recovered/Resolved]
  - Blast cell count increased [Unknown]
  - Pruritus [Unknown]
  - Polyhydramnios [Recovered/Resolved]
  - Maternal exposure during pregnancy [Unknown]
  - Rash papular [Recovered/Resolved]
  - White blood cell count increased [Unknown]
  - Dry skin [Unknown]
  - Rash papular [Unknown]

NARRATIVE: CASE EVENT DATE: 201409
